FAERS Safety Report 8817715 (Version 2)
Quarter: 2012Q4

REPORT INFORMATION
  Report Type: 
  Country: VE (occurrence: VE)
  Receive Date: 20121001
  Receipt Date: 20121003
  Transmission Date: 20130627
  Serious: Yes (Death)
  Sender: FDA-Public Use
  Company Number: VE-PFIZER INC-2012241301

PATIENT
  Age: 88 Year
  Sex: Female

DRUGS (2)
  1. CADUET [Suspect]
     Indication: HYPERCHOLESTEROLAEMIA
     Dosage: 5 mg/20 mg, 1x/day
     Route: 048
     Dates: start: 2008
  2. CADUET [Suspect]
     Indication: HYPERTENSION

REACTIONS (1)
  - Respiratory arrest [Fatal]
